FAERS Safety Report 16596357 (Version 2)
Quarter: 2019Q3

REPORT INFORMATION
  Report Type: Report from Study
  Country: KR (occurrence: KR)
  Receive Date: 20190719
  Receipt Date: 20190724
  Transmission Date: 20191004
  Serious: Yes (Other)
  Sender: FDA-Public Use
  Company Number: PHHY2019KR166679

PATIENT
  Age: 32 Year
  Sex: Male

DRUGS (9)
  1. DILATREND [Concomitant]
     Active Substance: CARVEDILOL
     Dosage: 16 MG, UNK
     Route: 065
     Dates: start: 20190620
  2. ENTRESTO [Suspect]
     Active Substance: SACUBITRIL\VALSARTAN
     Dosage: 200 MG, (SACUBITRIL 97 MG/ VALSARTAN 103 MG) BID
     Route: 048
     Dates: start: 20190304
  3. LASIX [Concomitant]
     Active Substance: FUROSEMIDE
     Indication: PRODUCT USED FOR UNKNOWN INDICATION
     Dosage: UNK
     Route: 065
     Dates: start: 20171102
  4. LIPIDIL SUPRA [Concomitant]
     Active Substance: FENOFIBRATE
     Indication: HYPERCHOLESTEROLAEMIA
     Dosage: 160 MG, UNK
     Route: 065
     Dates: start: 20190620
  5. ATORVA [Concomitant]
     Indication: HYPERCHOLESTEROLAEMIA
     Dosage: 10 MG, UNK
     Route: 065
     Dates: start: 20171102, end: 20190619
  6. DILATREND [Concomitant]
     Active Substance: CARVEDILOL
     Indication: CARDIAC FAILURE CHRONIC
     Dosage: 8 MG, UNK
     Route: 065
     Dates: start: 20180502, end: 20190619
  7. OMACOR [Concomitant]
     Active Substance: OMEGA-3-ACID ETHYL ESTERS
     Indication: HYPERCHOLESTEROLAEMIA
     Dosage: UNK
     Route: 065
     Dates: start: 20180502, end: 20190619
  8. ROSUZET COMPOSITE PACK [Concomitant]
     Active Substance: EZETIMIBE\ROSUVASTATIN
     Indication: HYPERCHOLESTEROLAEMIA
     Dosage: 10 MG, UNK
     Route: 065
     Dates: start: 20190620
  9. ENTRESTO [Suspect]
     Active Substance: SACUBITRIL\VALSARTAN
     Indication: CARDIAC FAILURE CHRONIC
     Dosage: 100 MG, (SACUBITRIL 49 MG/ VALSARTAN 51 MG) BID
     Route: 048
     Dates: start: 20181124, end: 20190303

REACTIONS (1)
  - Diabetes mellitus [Not Recovered/Not Resolved]

NARRATIVE: CASE EVENT DATE: 20190620
